FAERS Safety Report 16811397 (Version 16)
Quarter: 2025Q2

REPORT INFORMATION
  Report Type: Spontaneous
  Country: ES (occurrence: ES)
  Receive Date: 20190916
  Receipt Date: 20250616
  Transmission Date: 20250717
  Serious: Yes (Other)
  Sender: JOHNSON AND JOHNSON
  Company Number: ES-002147023-PHHY2019ES195606

PATIENT
  Age: 41 Year
  Sex: Male

DRUGS (113)
  1. FLUNARIZINE [Suspect]
     Active Substance: FLUNARIZINE
     Indication: Migraine
     Dosage: DOSE DESCRIPTION : 5 MG, QD
     Route: 065
  2. FLUNARIZINE [Suspect]
     Active Substance: FLUNARIZINE
     Dosage: DOSE DESCRIPTION : 5 MG, QD
     Route: 065
  3. FLUNARIZINE [Suspect]
     Active Substance: FLUNARIZINE
     Dosage: DOSE DESCRIPTION : 5 MG, QD
     Route: 065
  4. FLUNARIZINE [Suspect]
     Active Substance: FLUNARIZINE
     Dosage: DOSE DESCRIPTION : 5 MG, QD
     Route: 065
  5. TOPIRAMATE [Suspect]
     Active Substance: TOPIRAMATE
     Indication: Migraine
     Dosage: 25 MG, QD, ABBUSE?THERAPY START AND END DATE: /JUN/2009
     Route: 065
  6. TOPIRAMATE [Suspect]
     Active Substance: TOPIRAMATE
     Route: 065
  7. TOPIRAMATE [Suspect]
     Active Substance: TOPIRAMATE
     Dosage: 25 MG, QD, ABBUSE?THERAPY START AND END DATE: /JUN/2009
     Route: 065
  8. TOPIRAMATE [Suspect]
     Active Substance: TOPIRAMATE
     Route: 065
  9. TOPIRAMATE [Suspect]
     Active Substance: TOPIRAMATE
     Dosage: 25 MG, QD, ABBUSE?THERAPY START AND END DATE: /JUN/2009
     Route: 065
  10. TOPIRAMATE [Suspect]
     Active Substance: TOPIRAMATE
     Route: 065
  11. TOPIRAMATE [Suspect]
     Active Substance: TOPIRAMATE
     Route: 065
  12. TOPIRAMATE [Suspect]
     Active Substance: TOPIRAMATE
     Dosage: 25 MG, QD, ABBUSE?THERAPY START AND END DATE: /JUN/2009
     Route: 065
  13. XEOMIN [Suspect]
     Active Substance: INCOBOTULINUMTOXINA
     Indication: Migraine
     Dates: start: 200902, end: 200902
  14. XEOMIN [Suspect]
     Active Substance: INCOBOTULINUMTOXINA
     Dosage: 150 IU, QD
     Dates: start: 20130307
  15. XEOMIN [Suspect]
     Active Substance: INCOBOTULINUMTOXINA
     Dosage: 150 IU, QD, ABUSE?THERAPY START DATE: 07/MAR/2013
     Route: 065
  16. ERGOTAMINE [Suspect]
     Active Substance: CAFFEINE\ERGOTAMINE\ERGOTAMINE TARTRATE
     Indication: Migraine
  17. ERGOTAMINE [Suspect]
     Active Substance: CAFFEINE\ERGOTAMINE\ERGOTAMINE TARTRATE
     Route: 065
  18. ZOMIG [Suspect]
     Active Substance: ZOLMITRIPTAN
     Indication: Migraine
  19. ZOMIG [Suspect]
     Active Substance: ZOLMITRIPTAN
     Route: 065
  20. BOTOX [Suspect]
     Active Substance: ONABOTULINUMTOXINA
     Indication: Migraine
  21. BOTOX [Suspect]
     Active Substance: ONABOTULINUMTOXINA
     Route: 065
     Dates: end: 201110
  22. BOTOX [Suspect]
     Active Substance: ONABOTULINUMTOXINA
     Route: 065
     Dates: start: 20130307
  23. BOTOX [Suspect]
     Active Substance: ONABOTULINUMTOXINA
     Route: 065
  24. BOTOX [Suspect]
     Active Substance: ONABOTULINUMTOXINA
     Route: 065
  25. BOTOX [Suspect]
     Active Substance: ONABOTULINUMTOXINA
     Route: 065
  26. BOTOX [Suspect]
     Active Substance: ONABOTULINUMTOXINA
     Route: 065
  27. BOTOX [Suspect]
     Active Substance: ONABOTULINUMTOXINA
     Route: 065
  28. BOTOX [Suspect]
     Active Substance: ONABOTULINUMTOXINA
     Route: 065
  29. BOTOX [Suspect]
     Active Substance: ONABOTULINUMTOXINA
     Route: 065
  30. BOTOX [Suspect]
     Active Substance: ONABOTULINUMTOXINA
     Route: 065
  31. BOTOX [Suspect]
     Active Substance: ONABOTULINUMTOXINA
     Route: 065
     Dates: start: 201110, end: 201110
  32. MAXALT [Suspect]
     Active Substance: RIZATRIPTAN BENZOATE
     Indication: Migraine
  33. MAXALT [Suspect]
     Active Substance: RIZATRIPTAN BENZOATE
     Route: 065
  34. MAXALT [Suspect]
     Active Substance: RIZATRIPTAN BENZOATE
     Route: 065
  35. MAXALT [Suspect]
     Active Substance: RIZATRIPTAN BENZOATE
     Route: 065
  36. MAXALT [Suspect]
     Active Substance: RIZATRIPTAN BENZOATE
     Route: 065
  37. METAMIZOLE SODIUM [Suspect]
     Active Substance: METAMIZOLE SODIUM
     Indication: Migraine
  38. PREDNISONE [Suspect]
     Active Substance: PREDNISONE
     Indication: Migraine
  39. PREDNISONE [Suspect]
     Active Substance: PREDNISONE
     Dosage: DOSE DESCRIPTION : 60 MG, QD (60 MG,1 IN 1 D)
     Route: 065
  40. PREDNISONE [Suspect]
     Active Substance: PREDNISONE
     Dosage: DOSE DESCRIPTION : 60 MG, QD (60 MG,1 IN 1 D)
     Route: 065
  41. PREDNISONE [Suspect]
     Active Substance: PREDNISONE
     Dosage: DOSE DESCRIPTION : 60 MG, QD (60 MG,1 IN 1 D)
     Route: 065
  42. PREDNISONE [Suspect]
     Active Substance: PREDNISONE
     Dosage: DOSE DESCRIPTION : 60 MG, QD (60 MG,1 IN 1 D)
     Route: 065
  43. PREDNISONE [Suspect]
     Active Substance: PREDNISONE
     Dosage: 60 MG, QD (60 MG 1 IN 1 DAY), ABUSE
     Route: 065
  44. PAROXETINE [Suspect]
     Active Substance: PAROXETINE
     Indication: Migraine
  45. CAFFEINE [Suspect]
     Active Substance: CAFFEINE
     Indication: Migraine
  46. VALPROATE SODIUM [Suspect]
     Active Substance: VALPROATE SODIUM
     Indication: Migraine
  47. VALPROATE SODIUM [Suspect]
     Active Substance: VALPROATE SODIUM
     Dosage: DOSE DESCRIPTION : 500 MG, QD
     Route: 065
  48. VALPROATE SODIUM [Suspect]
     Active Substance: VALPROATE SODIUM
     Dosage: DOSE DESCRIPTION : 500 MG, QD
     Route: 065
  49. VALPROATE SODIUM [Suspect]
     Active Substance: VALPROATE SODIUM
     Dosage: DOSE DESCRIPTION : 500 MG, QD
     Route: 065
  50. VALPROATE SODIUM [Suspect]
     Active Substance: VALPROATE SODIUM
     Dosage: DOSE DESCRIPTION : 500 MG, QD
     Route: 065
  51. METAMIZOLE MAGNESIUM [Suspect]
     Active Substance: METAMIZOLE MAGNESIUM
     Indication: Migraine
  52. LAMOTRIGINE [Suspect]
     Active Substance: LAMOTRIGINE
     Indication: Migraine
     Dosage: DOSE DESCRIPTION : 50 MG, QD (50 MG,1 IN 1 D)
     Route: 065
  53. LAMOTRIGINE [Suspect]
     Active Substance: LAMOTRIGINE
     Dosage: DOSE DESCRIPTION : 50 MG, QD (50 MG,1 IN 1 D)
     Route: 065
  54. LAMOTRIGINE [Suspect]
     Active Substance: LAMOTRIGINE
     Dosage: DOSE DESCRIPTION : 50 MG, QD (50 MG,1 IN 1 D)
     Route: 065
  55. LAMOTRIGINE [Suspect]
     Active Substance: LAMOTRIGINE
     Dosage: DOSE DESCRIPTION : 50 MG, QD (50 MG,1 IN 1 D)
     Route: 065
  56. LAMOTRIGINE [Suspect]
     Active Substance: LAMOTRIGINE
     Dosage: 50 MG, QD, ABUSE OFF LABEL USE?THERAPY START DATE: /OCT/2011
     Route: 065
  57. IBUPROFEN [Suspect]
     Active Substance: IBUPROFEN
     Indication: Migraine
     Route: 065
  58. IBUPROFEN [Suspect]
     Active Substance: IBUPROFEN
     Route: 065
  59. IBUPROFEN [Suspect]
     Active Substance: IBUPROFEN
     Route: 065
  60. IBUPROFEN [Suspect]
     Active Substance: IBUPROFEN
     Route: 065
  61. BROMAZEPAM [Suspect]
     Active Substance: BROMAZEPAM
     Indication: Migraine
  62. BROMAZEPAM [Suspect]
     Active Substance: BROMAZEPAM
     Dosage: DOSE DESCRIPTION : 3 MG, QD
     Route: 065
  63. BROMAZEPAM [Suspect]
     Active Substance: BROMAZEPAM
     Dosage: DOSE DESCRIPTION : 3 MG, QD
     Route: 065
  64. BROMAZEPAM [Suspect]
     Active Substance: BROMAZEPAM
     Dosage: DOSE DESCRIPTION : 3 MG, QD
     Route: 065
  65. BROMAZEPAM [Suspect]
     Active Substance: BROMAZEPAM
     Dosage: DOSE DESCRIPTION : 3 MG, QD
     Route: 065
  66. PAROXETINE HYDROCHLORIDE [Suspect]
     Active Substance: PAROXETINE HYDROCHLORIDE
     Indication: Migraine
  67. PAROXETINE HYDROCHLORIDE [Suspect]
     Active Substance: PAROXETINE HYDROCHLORIDE
     Route: 065
  68. PAROXETINE HYDROCHLORIDE [Suspect]
     Active Substance: PAROXETINE HYDROCHLORIDE
     Route: 065
  69. PAROXETINE HYDROCHLORIDE [Suspect]
     Active Substance: PAROXETINE HYDROCHLORIDE
     Route: 065
  70. PAROXETINE HYDROCHLORIDE [Suspect]
     Active Substance: PAROXETINE HYDROCHLORIDE
     Route: 065
  71. PAROXETINE HYDROCHLORIDE [Suspect]
     Active Substance: PAROXETINE HYDROCHLORIDE
     Route: 065
  72. METAMIZOLE SODIUM [Suspect]
     Active Substance: METAMIZOLE SODIUM
     Indication: Migraine
     Route: 065
  73. METAMIZOLE SODIUM [Suspect]
     Active Substance: METAMIZOLE SODIUM
     Route: 065
  74. METAMIZOLE SODIUM [Suspect]
     Active Substance: METAMIZOLE SODIUM
     Route: 065
  75. METAMIZOLE SODIUM [Suspect]
     Active Substance: METAMIZOLE SODIUM
     Route: 065
  76. METAMIZOLE SODIUM [Suspect]
     Active Substance: METAMIZOLE SODIUM
     Route: 065
  77. AMITRIPTYLINE HYDROCHLORIDE [Suspect]
     Active Substance: AMITRIPTYLINE HYDROCHLORIDE
     Indication: Migraine
     Dosage: DOSE DESCRIPTION : 10 MG, QD
     Route: 065
  78. AMITRIPTYLINE HYDROCHLORIDE [Suspect]
     Active Substance: AMITRIPTYLINE HYDROCHLORIDE
     Dosage: DOSE DESCRIPTION : 10 MG, QD
     Route: 065
  79. AMITRIPTYLINE HYDROCHLORIDE [Suspect]
     Active Substance: AMITRIPTYLINE HYDROCHLORIDE
     Dosage: DOSE DESCRIPTION : 10 MG, QD
     Route: 065
  80. AMITRIPTYLINE HYDROCHLORIDE [Suspect]
     Active Substance: AMITRIPTYLINE HYDROCHLORIDE
     Dosage: 1 DF
  81. AMITRIPTYLINE HYDROCHLORIDE [Suspect]
     Active Substance: AMITRIPTYLINE HYDROCHLORIDE
     Dosage: DOSE DESCRIPTION : 10 MG, QD
     Route: 065
  82. AMITRIPTYLINE HYDROCHLORIDE [Suspect]
     Active Substance: AMITRIPTYLINE HYDROCHLORIDE
     Dosage: DOSE DESCRIPTION : 10 MG, QD
     Route: 065
  83. AMITRIPTYLINE HYDROCHLORIDE [Suspect]
     Active Substance: AMITRIPTYLINE HYDROCHLORIDE
     Dosage: DOSE DESCRIPTION : 10 MG, QD
     Route: 065
  84. AMITRIPTYLINE HYDROCHLORIDE [Suspect]
     Active Substance: AMITRIPTYLINE HYDROCHLORIDE
     Dosage: 1 DF
  85. AMITRIPTYLINE HYDROCHLORIDE [Suspect]
     Active Substance: AMITRIPTYLINE HYDROCHLORIDE
     Dosage: DOSE DESCRIPTION : 10 MG, QD
     Route: 065
  86. AMITRIPTYLINE HYDROCHLORIDE [Suspect]
     Active Substance: AMITRIPTYLINE HYDROCHLORIDE
     Dosage: DOSE DESCRIPTION : 10 MG, QD
     Route: 065
     Dates: start: 201211
  87. AMITRIPTYLINE HYDROCHLORIDE [Suspect]
     Active Substance: AMITRIPTYLINE HYDROCHLORIDE
     Dosage: 10 MG, QD, ABUSE?THERAPY START DATE: /OCT/2011
     Route: 065
  88. AMITRIPTYLINE HYDROCHLORIDE [Suspect]
     Active Substance: AMITRIPTYLINE HYDROCHLORIDE
     Indication: Migraine
     Dosage: DOSE DESCRIPTION : 1 DF, QD
     Route: 065
  89. AMITRIPTYLINE HYDROCHLORIDE [Suspect]
     Active Substance: AMITRIPTYLINE HYDROCHLORIDE
     Dosage: DOSE DESCRIPTION : 1 DF, QD
     Route: 065
  90. AMITRIPTYLINE HYDROCHLORIDE [Suspect]
     Active Substance: AMITRIPTYLINE HYDROCHLORIDE
     Dosage: DOSE DESCRIPTION : 10 MG, QD (10 MG,1 IN 1 D)
     Route: 065
  91. AMITRIPTYLINE HYDROCHLORIDE [Suspect]
     Active Substance: AMITRIPTYLINE HYDROCHLORIDE
     Dosage: DOSE DESCRIPTION : 10 MG, QD
     Route: 065
  92. AMITRIPTYLINE HYDROCHLORIDE [Suspect]
     Active Substance: AMITRIPTYLINE HYDROCHLORIDE
     Dosage: DOSE DESCRIPTION : 10 MG, QD (10 MG,1 IN 1 D)
     Route: 065
  93. AMITRIPTYLINE HYDROCHLORIDE [Suspect]
     Active Substance: AMITRIPTYLINE HYDROCHLORIDE
     Dosage: DOSE DESCRIPTION : 10 MG, QD
     Route: 065
  94. AMITRIPTYLINE HYDROCHLORIDE [Suspect]
     Active Substance: AMITRIPTYLINE HYDROCHLORIDE
     Dosage: DOSE DESCRIPTION : 1 DF, QD
     Route: 065
  95. AMITRIPTYLINE HYDROCHLORIDE [Suspect]
     Active Substance: AMITRIPTYLINE HYDROCHLORIDE
     Dosage: DOSE DESCRIPTION : 10 MG, QD (10 MG,1 IN 1 D)
     Route: 065
  96. AMITRIPTYLINE HYDROCHLORIDE [Suspect]
     Active Substance: AMITRIPTYLINE HYDROCHLORIDE
     Dosage: DOSE DESCRIPTION : 10 MG, QD
     Route: 065
  97. AMITRIPTYLINE HYDROCHLORIDE [Suspect]
     Active Substance: AMITRIPTYLINE HYDROCHLORIDE
     Dosage: DOSE DESCRIPTION : 10 MG, QD (10 MG,1 IN 1 D)
     Route: 065
  98. AMITRIPTYLINE HYDROCHLORIDE [Suspect]
     Active Substance: AMITRIPTYLINE HYDROCHLORIDE
     Dosage: DOSE DESCRIPTION : 1 DF, QD
     Route: 065
     Dates: start: 201211
  99. AMITRIPTYLINE HYDROCHLORIDE [Suspect]
     Active Substance: AMITRIPTYLINE HYDROCHLORIDE
     Dosage: DOSE DESCRIPTION : 10 MG, QD
     Route: 065
  100. ELETRIPTAN HYDROBROMIDE [Suspect]
     Active Substance: ELETRIPTAN HYDROBROMIDE
     Indication: Migraine
     Route: 065
  101. ELETRIPTAN HYDROBROMIDE [Suspect]
     Active Substance: ELETRIPTAN HYDROBROMIDE
     Route: 065
  102. ELETRIPTAN HYDROBROMIDE [Suspect]
     Active Substance: ELETRIPTAN HYDROBROMIDE
     Route: 065
  103. ELETRIPTAN HYDROBROMIDE [Suspect]
     Active Substance: ELETRIPTAN HYDROBROMIDE
     Route: 065
  104. ACETAMINOPHEN\BELLADONNA LEAF\CAFFEINE\ERGOTAMINE TARTRATE [Suspect]
     Active Substance: ACETAMINOPHEN\BELLADONNA LEAF\CAFFEINE\ERGOTAMINE TARTRATE
     Indication: Migraine
     Route: 065
  105. ACETAMINOPHEN\BELLADONNA LEAF\CAFFEINE\ERGOTAMINE TARTRATE [Suspect]
     Active Substance: ACETAMINOPHEN\BELLADONNA LEAF\CAFFEINE\ERGOTAMINE TARTRATE
     Route: 065
  106. ACETAMINOPHEN\BELLADONNA LEAF\CAFFEINE\ERGOTAMINE TARTRATE [Suspect]
     Active Substance: ACETAMINOPHEN\BELLADONNA LEAF\CAFFEINE\ERGOTAMINE TARTRATE
     Route: 065
  107. ACETAMINOPHEN\BELLADONNA LEAF\CAFFEINE\ERGOTAMINE TARTRATE [Suspect]
     Active Substance: ACETAMINOPHEN\BELLADONNA LEAF\CAFFEINE\ERGOTAMINE TARTRATE
     Route: 065
  108. ACETAMINOPHEN [Suspect]
     Active Substance: ACETAMINOPHEN
     Indication: Migraine
     Route: 065
  109. DICLOFENAC SODIUM [Suspect]
     Active Substance: DICLOFENAC SODIUM
     Indication: Migraine
     Route: 065
  110. DICLOFENAC SODIUM [Suspect]
     Active Substance: DICLOFENAC SODIUM
     Route: 065
  111. DICLOFENAC SODIUM [Suspect]
     Active Substance: DICLOFENAC SODIUM
     Route: 065
  112. DICLOFENAC SODIUM [Suspect]
     Active Substance: DICLOFENAC SODIUM
     Route: 065
  113. DICLOFENAC SODIUM [Suspect]
     Active Substance: DICLOFENAC SODIUM
     Route: 065

REACTIONS (7)
  - Insomnia [Unknown]
  - Paraesthesia [Unknown]
  - Therapy partial responder [Unknown]
  - Off label use [Unknown]
  - Product use in unapproved indication [Unknown]
  - Intentional product misuse [Unknown]
  - Drug abuse [Unknown]

NARRATIVE: CASE EVENT DATE: 20090201
